FAERS Safety Report 24002272 (Version 1)
Quarter: 2024Q2

REPORT INFORMATION
  Report Type: Spontaneous
  Country: US (occurrence: None)
  Receive Date: 20240622
  Receipt Date: 20240622
  Transmission Date: 20240715
  Serious: No
  Sender: FDA-Public Use
  Company Number: 2024A144065

PATIENT
  Age: 16838 Day
  Sex: Female

DRUGS (2)
  1. WAINUA [Suspect]
     Active Substance: EPLONTERSEN
     Indication: Acquired ATTR amyloidosis
     Route: 058
     Dates: start: 20240619
  2. VIT A [Concomitant]

REACTIONS (3)
  - Abdominal discomfort [Recovered/Resolved]
  - Nervousness [Recovered/Resolved]
  - Fatigue [Recovered/Resolved]

NARRATIVE: CASE EVENT DATE: 20240619
